FAERS Safety Report 8374369-X (Version None)
Quarter: 2012Q2

REPORT INFORMATION
  Report Type: 
  Country: None (occurrence: None)
  Receive Date: 20120521
  Receipt Date: 20120515
  Transmission Date: 20120825
  Serious: Yes (Hospitalization, Other)
  Sender: FDA-Public Use
  Company Number: US-BAYER-2012-020401

PATIENT
  Age: 32 Year
  Sex: Female
  Weight: 73.469 kg

DRUGS (1)
  1. YAZ [Suspect]
     Indication: CONTRACEPTION
     Dosage: UNK
     Route: 048
     Dates: start: 20100301, end: 20100501

REACTIONS (9)
  - VOMITING [None]
  - INSOMNIA [None]
  - CHOLECYSTITIS CHRONIC [None]
  - INJURY [None]
  - CHEST PAIN [None]
  - BACK PAIN [None]
  - CHOLECYSTECTOMY [None]
  - PAIN [None]
  - ABDOMINAL PAIN UPPER [None]
